FAERS Safety Report 10586038 (Version 2)
Quarter: 2014Q4

REPORT INFORMATION
  Report Type: Spontaneous
  Country: GB (occurrence: GB)
  Receive Date: 20141115
  Receipt Date: 20141204
  Transmission Date: 20150529
  Serious: Yes (Other)
  Sender: FDA-Public Use
  Company Number: GB-ASTRAZENECA-2014SE84582

PATIENT
  Sex: Female

DRUGS (3)
  1. OMEPRAZOLE. [Concomitant]
     Active Substance: OMEPRAZOLE
  2. ANASTROZOLE. [Suspect]
     Active Substance: ANASTROZOLE
     Indication: PRODUCT USED FOR UNKNOWN INDICATION
     Route: 048
  3. ANASTROZOLE. [Suspect]
     Active Substance: ANASTROZOLE
     Indication: PRODUCT USED FOR UNKNOWN INDICATION
     Dosage: TEVA
     Route: 048
     Dates: start: 20120402

REACTIONS (18)
  - Hypokinesia [Unknown]
  - Arthralgia [Unknown]
  - Hiatus hernia [Unknown]
  - Muscle disorder [Unknown]
  - Urinary tract infection [Unknown]
  - Wrist fracture [Unknown]
  - Muscle tightness [Unknown]
  - Burning sensation [Unknown]
  - Fall [Unknown]
  - Diarrhoea [Unknown]
  - Malaise [Unknown]
  - Sports injury [Unknown]
  - Myalgia [Unknown]
  - Hernia [Unknown]
  - Abdominal hernia [Unknown]
  - Bladder irritation [Unknown]
  - Pain [Unknown]
  - Arthritis [Unknown]
